FAERS Safety Report 25838837 (Version 1)
Quarter: 2025Q3

REPORT INFORMATION
  Report Type: Spontaneous
  Country: GB (occurrence: GB)
  Receive Date: 20250924
  Receipt Date: 20250924
  Transmission Date: 20251021
  Serious: No
  Sender: ALKEM
  Company Number: None

PATIENT
  Age: 89 Year
  Sex: Male
  Weight: 72 kg

DRUGS (1)
  1. TAMSULOSIN HYDROCHLORIDE [Suspect]
     Active Substance: TAMSULOSIN HYDROCHLORIDE
     Indication: Benign prostatic hyperplasia
     Route: 048
     Dates: start: 20250401

REACTIONS (2)
  - Libido increased [Not Recovered/Not Resolved]
  - Ejaculation delayed [Not Recovered/Not Resolved]

NARRATIVE: CASE EVENT DATE: 20250425
